FAERS Safety Report 15989227 (Version 1)
Quarter: 2019Q1

REPORT INFORMATION
  Report Type: Report from Study
  Country: US (occurrence: US)
  Receive Date: 20190221
  Receipt Date: 20190221
  Transmission Date: 20190418
  Serious: Yes (Hospitalization, Other)
  Sender: FDA-Public Use
  Company Number: US-ROCHE-2267105

PATIENT
  Age: 9 Year
  Sex: Female

DRUGS (1)
  1. RITUXAN [Suspect]
     Active Substance: RITUXIMAB
     Indication: NEUROMYELITIS OPTICA SPECTRUM DISORDER
     Route: 042
     Dates: start: 201205, end: 201301

REACTIONS (9)
  - Paraesthesia [Unknown]
  - Neuromyelitis optica spectrum disorder [Recovering/Resolving]
  - Pain [Unknown]
  - Fatigue [Recovered/Resolved]
  - Jaundice [Unknown]
  - Headache [Recovered/Resolved]
  - Intentional product use issue [Unknown]
  - Hypoaesthesia [Recovered/Resolved]
  - Off label use [Unknown]

NARRATIVE: CASE EVENT DATE: 201401
